FAERS Safety Report 6384474-5 (Version None)
Quarter: 2009Q3

REPORT INFORMATION
  Report Type: 
  Country: None (occurrence: None)
  Receive Date: 20090929
  Receipt Date: 20090918
  Transmission Date: 20100115
  Serious: Yes (Other)
  Sender: FDA-Public Use
  Company Number: 2009SP026060

PATIENT
  Age: 39 Year
  Sex: Female

DRUGS (6)
  1. LORATADINE [Suspect]
  2. TWINRIX (TWINRIX 01330901/) [Suspect]
     Indication: PROPHYLAXIS
     Dosage: IN SERIES
     Dates: start: 20090512
  3. TWINRIX (TWINRIX 01330901/) [Suspect]
     Indication: PROPHYLAXIS
     Dosage: IN SERIES
     Dates: start: 20090519
  4. TYPHERIX (TYPHOID VACCINE) [Suspect]
     Indication: PROPHYLAXIS
     Dates: start: 20090512
  5. YELLOW FEVER (YELLOW FEVER VACCINE) [Suspect]
     Indication: PROPHYLAXIS
     Dates: start: 20090501
  6. BECLOMETHASONE DIPROPIONATE [Suspect]

REACTIONS (3)
  - ABORTION INDUCED [None]
  - DRUG EXPOSURE DURING PREGNANCY [None]
  - PREGNANCY [None]
